FAERS Safety Report 13255272 (Version 2)
Quarter: 2017Q2

REPORT INFORMATION
  Report Type: Spontaneous
  Country: US (occurrence: US)
  Receive Date: 20170221
  Receipt Date: 20170512
  Transmission Date: 20170830
  Serious: Yes (Hospitalization, Other)
  Sender: FDA-Public Use
  Company Number: US-JNJFOC-20170116756

PATIENT
  Sex: Male

DRUGS (2)
  1. INVEGA TRINZA [Suspect]
     Active Substance: PALIPERIDONE PALMITATE
     Indication: SCHIZOPHRENIA
     Route: 030
     Dates: start: 20160415
  2. INVEGA TRINZA [Suspect]
     Active Substance: PALIPERIDONE PALMITATE
     Indication: SCHIZOPHRENIA
     Route: 030
     Dates: start: 20160711, end: 20160927

REACTIONS (2)
  - Drug effect decreased [Unknown]
  - Paranoia [Not Recovered/Not Resolved]

NARRATIVE: CASE EVENT DATE: 2016
